FAERS Safety Report 21447030 (Version 3)
Quarter: 2022Q4

REPORT INFORMATION
  Report Type: Spontaneous
  Country: IT (occurrence: IT)
  Receive Date: 20221012
  Receipt Date: 20221019
  Transmission Date: 20230112
  Serious: Yes (Death, Other)
  Sender: FDA-Public Use
  Company Number: None

PATIENT
  Age: 56 Year
  Sex: Female
  Weight: 64 kg

DRUGS (14)
  1. TRODELVY [Suspect]
     Active Substance: SACITUZUMAB GOVITECAN-HZIY
     Indication: Metaplastic breast carcinoma
     Dosage: 10 MG/KG, C1D1 AND D8
     Route: 042
     Dates: start: 20220921, end: 20220928
  2. BROMAZEPAM [Concomitant]
     Active Substance: BROMAZEPAM
     Dosage: 10 GTT AL GIORNO (10 DROPS PER DAY)
     Route: 048
  3. BROMAZEPAM [Concomitant]
     Active Substance: BROMAZEPAM
     Dosage: 10 GTT AL GIORNO (10 DROPS PER DAY)
     Route: 048
  4. CHOLECALCIFEROL [Concomitant]
     Active Substance: CHOLECALCIFEROL
     Dosage: 100.000 UI 1 VIAL PER MONTH
     Route: 048
  5. CHOLECALCIFEROL [Concomitant]
     Active Substance: CHOLECALCIFEROL
     Dosage: 100.000 UI 1 FIALA AL MESE (1 VIAL PER MONTH)
     Route: 048
  6. MOVICOL [Concomitant]
     Active Substance: POLYETHYLENE GLYCOL 3350\POTASSIUM CHLORIDE\SODIUM BICARBONATE\SODIUM CHLORIDE
     Dosage: 1 BUSTINA 2 VOLTE AL GIORNO (1 SATCHET 2X/DAY)
     Route: 048
  7. ACETAMINOPHEN [Concomitant]
     Active Substance: ACETAMINOPHEN
     Indication: Pain
     Dosage: 1000 MG CP, 1 CP FINO A TRE VOLTE AL GIORNO, SE DOLORE (1000 MG TABLET, 1 TABLET UP TO 3X/DAY IN CAS
     Route: 048
  8. ACETAMINOPHEN [Concomitant]
     Active Substance: ACETAMINOPHEN
     Dosage: 1000 MG CP, 1 CP FINO A TRE VOLTE AL GIORNO, SE DOLORE [1000 MG TABLET, 1 TABLET UP TO 3X/DAY IN CAS
     Route: 048
  9. ROSUVASTATIN [Concomitant]
     Active Substance: ROSUVASTATIN
     Route: 048
  10. PANTOPRAZOLE SODIUM [Concomitant]
     Active Substance: PANTOPRAZOLE SODIUM
     Dosage: 20 MG CP, 1 CP AL GIORNO (20 MG TABLET, 1 TABLET/DAY)
     Route: 048
  11. PANTOPRAZOLE SODIUM [Concomitant]
     Active Substance: PANTOPRAZOLE SODIUM
     Dosage: 20 MG CP, 1 CP AL GIORNO (20 MG TABLET, 1 TABLET/DAY)
     Route: 048
  12. ZOLPIDEM TARTRATE [Concomitant]
     Active Substance: ZOLPIDEM TARTRATE
     Dosage: 1 CP AL GIORNO (1 TABLET PER DAY)
     Route: 048
  13. ZOLPIDEM TARTRATE [Concomitant]
     Active Substance: ZOLPIDEM TARTRATE
     Dosage: 1 CP AL GIORNO (1 TABLET PER DAY)
     Route: 048
  14. TAVOR (LORAZEPAM) [Concomitant]
     Active Substance: LORAZEPAM
     Dosage: 2,5 MG CP, 1 CP AL BISOGNO (2.5 MG TABLET, 1 TABLET AS NEEDED)
     Route: 048

REACTIONS (1)
  - Necrotising colitis [Fatal]

NARRATIVE: CASE EVENT DATE: 20221003
